FAERS Safety Report 5672592-6 (Version None)
Quarter: 2008Q1

REPORT INFORMATION
  Report Type: 
  Country: None (occurrence: None)
  Receive Date: 20080317
  Receipt Date: 20080303
  Transmission Date: 20080703
  Serious: Yes (Hospitalization)
  Sender: FDA-Public Use
  Company Number: 2008AL001285

PATIENT
  Age: 66 Year
  Sex: Female

DRUGS (1)
  1. CLONIDINE HCL [Suspect]
     Indication: HYPERTENSION
     Dosage: 0.3 MG; BID; PO
     Route: 048
     Dates: start: 20071101, end: 20080101

REACTIONS (3)
  - EYE DISORDER [None]
  - GENERALISED ERYTHEMA [None]
  - ORAL HERPES [None]
